FAERS Safety Report 10371749 (Version 1)
Quarter: 2014Q1

REPORT INFORMATION
  Report Type: Spontaneous
  Country: US (occurrence: None)
  Receive Date: 20140306
  Receipt Date: 20140306
  Transmission Date: 20141002
  Serious: Yes (Other)
  Sender: FDA-Public Use
  Company Number: 163-21880-13083848

PATIENT
  Age: 65 Year
  Sex: Female

DRUGS (11)
  1. REVLIMID (LENALIDOMIDE) (25 MILLIGRAM, CAPSULES) [Suspect]
     Indication: PLASMA CELL MYELOMA
     Route: 048
     Dates: start: 201012
  2. CENTRUM (CENTRUM) (UNKNOWN) [Concomitant]
  3. SIMVASTATIN (SIMVASTATIN) (UNKNOWN) [Concomitant]
  4. ASPIRIN (ACETYLSALICYLIC ACID) (UNKNOWN) (ACETYLSALICYLIC ACID) [Concomitant]
  5. GABAPENTIN (GABAPENTIN) (UNKNOWN) (GABAPENTIN) [Concomitant]
  6. VALTREX (VALACICLOVIR HYDROCHLORIDE) (UNKNOWN) [Concomitant]
  7. ADVAIR DISKUS (SERETIDE MITE) (INHALANT) [Concomitant]
  8. METOPROLOL/HCTZ (CO-BETALOC) (UNKNOWN) [Concomitant]
  9. LEVOTHYROXINE (LEVOTHYROXINE) (UNKNOWN) [Concomitant]
  10. OXYCODONE AND ACETAMINOPHEN (OXYCOCET) (UNKNOWN) [Concomitant]
  11. VITAMIN D3 (COLECALCIFEROL) (UNKNOWN) [Concomitant]

REACTIONS (1)
  - Spinal compression fracture [None]
